FAERS Safety Report 21295104 (Version 2)
Quarter: 2022Q3

REPORT INFORMATION
  Report Type: Spontaneous
  Country: JP (occurrence: JP)
  Receive Date: 20220905
  Receipt Date: 20220921
  Transmission Date: 20221026
  Serious: Yes (Death, Life-Threatening, Hospitalization, Other)
  Sender: FDA-Public Use
  Company Number: JP-MSD-2201JPN003642J

PATIENT
  Age: 63 Year
  Sex: Female

DRUGS (3)
  1. KEYTRUDA [Suspect]
     Active Substance: PEMBROLIZUMAB
     Indication: Endometrial adenocarcinoma
     Dosage: 200 MILLIGRAM, Q3W
     Route: 041
     Dates: start: 20220118, end: 20220302
  2. LENVIMA [Suspect]
     Active Substance: LENVATINIB
     Indication: Endometrial adenocarcinoma
     Dosage: 20 MILLIGRAM, QD
     Route: 048
     Dates: start: 20220118, end: 202201
  3. LENVIMA [Suspect]
     Active Substance: LENVATINIB
     Dosage: 14 MILLIGRAM, QD
     Route: 048
     Dates: start: 2022, end: 20220302

REACTIONS (6)
  - Immune-mediated hypothyroidism [Unknown]
  - Malignant neoplasm progression [Fatal]
  - Hypertension [Recovered/Resolved]
  - Stomatitis [Unknown]
  - Epistaxis [Unknown]
  - Proteinuria [Recovered/Resolved]

NARRATIVE: CASE EVENT DATE: 20220101
